FAERS Safety Report 8078349-3 (Version None)
Quarter: 2012Q1

REPORT INFORMATION
  Report Type: 
  Country: None (occurrence: None)
  Receive Date: 20120127
  Receipt Date: 20110112
  Transmission Date: 20120608
  Serious: No
  Sender: FDA-Public Use
  Company Number: US-ABBOTT-10P-163-0628066-00

PATIENT
  Sex: Female
  Weight: 79.45 kg

DRUGS (2)
  1. HUMIRA [Suspect]
     Dates: end: 20100123
  2. HUMIRA [Suspect]
     Indication: PSORIASIS
     Dates: start: 20091218, end: 20100127

REACTIONS (8)
  - INJECTION SITE RASH [None]
  - RASH [None]
  - VOMITING [None]
  - ARTHRALGIA [None]
  - MALAISE [None]
  - INJECTION SITE ERYTHEMA [None]
  - FEELING ABNORMAL [None]
  - INJECTION SITE SWELLING [None]
